FAERS Safety Report 6196170-8 (Version None)
Quarter: 2009Q2

REPORT INFORMATION
  Report Type: 
  Country: None (occurrence: None)
  Receive Date: 20090520
  Receipt Date: 20090512
  Transmission Date: 20091009
  Serious: Yes (Hospitalization, Other)
  Sender: FDA-Public Use
  Company Number: US-BIOGENIDEC-2008BI012171

PATIENT
  Age: 40 Year
  Sex: Male
  Weight: 106 kg

DRUGS (1)
  1. TYSABRI [Suspect]
     Indication: MULTIPLE SCLEROSIS
     Route: 042
     Dates: start: 20070711

REACTIONS (19)
  - CATHETER RELATED COMPLICATION [None]
  - DEEP VEIN THROMBOSIS [None]
  - DYSURIA [None]
  - FALL [None]
  - FATIGUE [None]
  - FOOT DEFORMITY [None]
  - GAIT DISTURBANCE [None]
  - HIP FRACTURE [None]
  - INFUSION RELATED REACTION [None]
  - MALAISE [None]
  - MUSCULAR WEAKNESS [None]
  - POST PROCEDURAL HAEMORRHAGE [None]
  - PSEUDOMONAS INFECTION [None]
  - PYREXIA [None]
  - SKIN INFECTION [None]
  - TENDON DISORDER [None]
  - THROMBOSIS [None]
  - TREMOR [None]
  - URINARY TRACT INFECTION [None]
